FAERS Safety Report 7487614-X (Version None)
Quarter: 2011Q2

REPORT INFORMATION
  Report Type: 
  Country: None (occurrence: None)
  Receive Date: 20110518
  Receipt Date: 20110429
  Transmission Date: 20111010
  Serious: No
  Sender: FDA-Public Use
  Company Number: US-B.I. PHARMACEUTICALS,INC./RIDGEFIELD-2011-BP-08838BP

PATIENT
  Sex: Female

DRUGS (4)
  1. WARFARIN SODIUM [Concomitant]
  2. LOVASTATIN [Concomitant]
  3. PRADAXA [Suspect]
  4. ROPINORLE [Concomitant]

REACTIONS (4)
  - FOREIGN BODY [None]
  - ADVERSE DRUG REACTION [None]
  - VOMITING [None]
  - ODYNOPHAGIA [None]
